FAERS Safety Report 14212771 (Version 1)
Quarter: 2017Q4

REPORT INFORMATION
  Report Type: Spontaneous
  Country: FR (occurrence: FR)
  Receive Date: 20171122
  Receipt Date: 20171122
  Transmission Date: 20180321
  Serious: Yes (Other)
  Sender: FDA-Public Use
  Company Number: FR-PFIZER INC-2017498285

PATIENT
  Age: 41 Year
  Sex: Female

DRUGS (7)
  1. PROPOFOL. [Suspect]
     Active Substance: PROPOFOL
     Indication: ANAESTHESIA
     Dosage: UNK
     Route: 042
     Dates: start: 20170801, end: 20170801
  2. DROPERIDOL. [Suspect]
     Active Substance: DROPERIDOL
     Indication: PROPHYLAXIS OF NAUSEA AND VOMITING
     Dosage: UNK
     Route: 042
     Dates: start: 20170801, end: 20170801
  3. NITROUS OXIDE. [Suspect]
     Active Substance: NITROUS OXIDE
     Indication: ANAESTHESIA
     Dosage: UNK
     Route: 055
     Dates: start: 20170801, end: 20170801
  4. REMIFENTANIL [Suspect]
     Active Substance: REMIFENTANIL
     Indication: ANAESTHESIA
     Dosage: UNK
     Route: 042
     Dates: start: 20170801, end: 20170801
  5. SOLU-MEDROL [Suspect]
     Active Substance: METHYLPREDNISOLONE SODIUM SUCCINATE
     Dosage: UNK
     Route: 042
     Dates: start: 20170801, end: 20170801
  6. PARACETAMOL [Suspect]
     Active Substance: ACETAMINOPHEN
     Indication: ANALGESIC INTERVENTION SUPPORTIVE THERAPY
     Dosage: UNK
     Route: 042
     Dates: start: 20170801, end: 20170801
  7. NEFOPAM HYDROCHLORIDE [Suspect]
     Active Substance: NEFOPAM HYDROCHLORIDE
     Indication: ANALGESIC INTERVENTION SUPPORTIVE THERAPY
     Dosage: UNK
     Route: 042
     Dates: start: 20170801, end: 20170801

REACTIONS (1)
  - Abortion spontaneous [Unknown]

NARRATIVE: CASE EVENT DATE: 20170916
